FAERS Safety Report 7699514-0 (Version None)
Quarter: 2011Q3

REPORT INFORMATION
  Report Type: 
  Country: None (occurrence: None)
  Receive Date: 20110820
  Receipt Date: 20110425
  Transmission Date: 20111222
  Serious: No
  Sender: FDA-Public Use
  Company Number: US-ALLERGAN-1105744US

PATIENT
  Age: 63 Year
  Sex: Female

DRUGS (6)
  1. ASPIRIN [Concomitant]
  2. PREMARIN [Concomitant]
  3. GLUCOSAMINE [Concomitant]
  4. SANCTURA XR [Suspect]
     Indication: HYPERTONIC BLADDER
     Dosage: 60 MG, QAM
     Route: 048
     Dates: start: 20110308, end: 20110325
  5. FISH OIL [Concomitant]
  6. MULTI-VITAMINS [Concomitant]

REACTIONS (5)
  - FATIGUE [None]
  - HEADACHE [None]
  - POLLAKIURIA [None]
  - SUICIDAL IDEATION [None]
  - MICTURITION URGENCY [None]
